FAERS Safety Report 8889003 (Version 1)
Quarter: 2012Q4

REPORT INFORMATION
  Report Type: 
  Country: BE (occurrence: BE)
  Receive Date: 20121106
  Receipt Date: 20121106
  Transmission Date: 20130627
  Serious: Yes (Other)
  Sender: FDA-Public Use
  Company Number: PHHY2012BE099603

PATIENT
  Sex: Male

DRUGS (3)
  1. TOPIRAMATE [Suspect]
     Indication: ENCEPHALOPATHY
  2. OXCARBAZEPINE [Concomitant]
     Indication: ENCEPHALOPATHY
  3. VALPROIC ACID [Concomitant]
     Indication: ENCEPHALOPATHY

REACTIONS (2)
  - Hypothermia [Recovered/Resolved]
  - Altered state of consciousness [Recovered/Resolved]
